FAERS Safety Report 12428724 (Version 1)
Quarter: 2016Q2

REPORT INFORMATION
  Report Type: Spontaneous
  Country: US (occurrence: US)
  Receive Date: 20160602
  Receipt Date: 20160602
  Transmission Date: 20160815
  Serious: No
  Sender: FDA-Public Use
  Company Number: US-009507513-1606USA000091

PATIENT
  Age: 18 Year
  Sex: Female
  Weight: 84.81 kg

DRUGS (1)
  1. NUVARING [Suspect]
     Active Substance: ETHINYL ESTRADIOL\ETONOGESTREL
     Dosage: 1 RING EVERY 4 WEEKS
     Route: 067
     Dates: start: 201005

REACTIONS (3)
  - Device expulsion [Unknown]
  - Device breakage [Unknown]
  - Incorrect drug administration duration [Unknown]

NARRATIVE: CASE EVENT DATE: 201005
